FAERS Safety Report 24677815 (Version 1)
Quarter: 2024Q4

REPORT INFORMATION
  Report Type: Spontaneous
  Country: GB (occurrence: GB)
  Receive Date: 20241129
  Receipt Date: 20241129
  Transmission Date: 20250115
  Serious: Yes (Other)
  Sender: ABBVIE
  Company Number: None

PATIENT
  Age: 41 Year
  Sex: Female

DRUGS (1)
  1. CITALOPRAM [Suspect]
     Active Substance: CITALOPRAM
     Indication: Product used for unknown indication
     Dosage: 10 MG ONCE A DAY
     Route: 065
     Dates: start: 20241108

REACTIONS (5)
  - Disturbance in attention [Recovering/Resolving]
  - Nausea [Recovered/Resolved]
  - Vision blurred [Recovered/Resolved]
  - Asthenia [Recovered/Resolved]
  - Fatigue [Recovering/Resolving]

NARRATIVE: CASE EVENT DATE: 20241101
